FAERS Safety Report 25539404 (Version 1)
Quarter: 2025Q3

REPORT INFORMATION
  Report Type: Spontaneous
  Country: EU (occurrence: EU)
  Receive Date: 20250710
  Receipt Date: 20250710
  Transmission Date: 20251021
  Serious: Yes (Other)
  Sender: JOHNSON AND JOHNSON
  Company Number: EU-JNJFOC-20250708321

PATIENT

DRUGS (1)
  1. TALQUETAMAB [Suspect]
     Active Substance: TALQUETAMAB
     Indication: Product used for unknown indication
     Route: 065

REACTIONS (5)
  - Cytokine release syndrome [Unknown]
  - Hypogammaglobulinaemia [Unknown]
  - Skin disorder [Unknown]
  - Oral disorder [Unknown]
  - Nail disorder [Unknown]
